FAERS Safety Report 18895219 (Version 2)
Quarter: 2021Q1

REPORT INFORMATION
  Report Type: Report from Study
  Country: BR (occurrence: BR)
  Receive Date: 20210216
  Receipt Date: 20210329
  Transmission Date: 20210420
  Serious: Yes (Other)
  Sender: FDA-Public Use
  Company Number: BR-BRISTOL-MYERS SQUIBB COMPANY-BMS-2021-013129

PATIENT
  Age: 63 Year
  Sex: Male

DRUGS (2)
  1. APIXABAN [Suspect]
     Active Substance: APIXABAN
     Indication: EMBOLISM VENOUS
     Dosage: 5 MILLIGRAM, BID
     Route: 048
     Dates: start: 201902, end: 202002
  2. APIXABAN [Suspect]
     Active Substance: APIXABAN
     Dosage: 5 MILLIGRAM, BID
     Route: 048
     Dates: start: 202012

REACTIONS (1)
  - Thrombosis [Unknown]

NARRATIVE: CASE EVENT DATE: 202012
